FAERS Safety Report 16083005 (Version 1)
Quarter: 2019Q1

REPORT INFORMATION
  Report Type: Report from Study
  Country: None (occurrence: US)
  Receive Date: 20190318
  Receipt Date: 20190318
  Transmission Date: 20190418
  Serious: Yes (Other)
  Sender: FDA-Public Use
  Company Number: US-ABBVIE-19K-163-2700356-00

PATIENT
  Sex: Female

DRUGS (3)
  1. PREDNISONE. [Suspect]
     Active Substance: PREDNISONE
     Indication: PRODUCT USED FOR UNKNOWN INDICATION
     Route: 065
  2. HUMIRA [Suspect]
     Active Substance: ADALIMUMAB
     Indication: RHEUMATOID ARTHRITIS
     Route: 058
  3. PREDNISONE. [Suspect]
     Active Substance: PREDNISONE
     Dosage: FOR 5 DAYS
     Route: 065

REACTIONS (9)
  - Torticollis [Unknown]
  - Arthralgia [Recovering/Resolving]
  - Post procedural complication [Unknown]
  - Musculoskeletal disorder [Unknown]
  - Pain in extremity [Recovering/Resolving]
  - Rheumatoid arthritis [Unknown]
  - Cerebrovascular accident [Unknown]
  - Vascular procedure complication [Unknown]
  - Intentional product misuse [Unknown]
